FAERS Safety Report 24251713 (Version 1)
Quarter: 2024Q3

REPORT INFORMATION
  Report Type: Spontaneous
  Country: GB (occurrence: GB)
  Receive Date: 20240827
  Receipt Date: 20240827
  Transmission Date: 20241017
  Serious: Yes (Other)
  Sender: AUROBINDO
  Company Number: GB-MHRA-MED-202408131241196900-MSVGJ

PATIENT
  Age: 15 Year
  Sex: Female
  Weight: 70 kg

DRUGS (3)
  1. TERBINAFINE [Suspect]
     Active Substance: TERBINAFINE
     Indication: Adverse drug reaction
     Dosage: 250 MILLIGRAM, DAILY
     Route: 065
     Dates: start: 20240717, end: 20240803
  2. MONTELUKAST [Concomitant]
     Active Substance: MONTELUKAST SODIUM
     Indication: Asthma
     Dosage: UNK
     Route: 065
     Dates: start: 20231207
  3. SYMBICORT [Concomitant]
     Active Substance: BUDESONIDE\FORMOTEROL FUMARATE DIHYDRATE
     Indication: Asthma
     Dosage: UNK
     Route: 065
     Dates: start: 20230613

REACTIONS (2)
  - Liver function test abnormal [Unknown]
  - Epistaxis [Recovered/Resolved]

NARRATIVE: CASE EVENT DATE: 20240731
